FAERS Safety Report 21806733 (Version 1)
Quarter: 2023Q1

REPORT INFORMATION
  Report Type: Report from Study
  Country: CR (occurrence: CR)
  Receive Date: 20230102
  Receipt Date: 20230102
  Transmission Date: 20230418
  Serious: Yes (Other)
  Sender: FDA-Public Use
  Company Number: CR-002147023-NVSC2022CR300971

PATIENT
  Sex: Male

DRUGS (1)
  1. EXFORGE HCT [Suspect]
     Active Substance: AMLODIPINE BESYLATE\HYDROCHLOROTHIAZIDE\VALSARTAN
     Indication: Hypertension
     Dosage: 10/320/25 MG, QD
     Route: 048
     Dates: start: 202106

REACTIONS (3)
  - Diabetes mellitus [Unknown]
  - Erythema [Unknown]
  - Hypersensitivity [Recovering/Resolving]
